FAERS Safety Report 12763791 (Version 1)
Quarter: 2016Q3

REPORT INFORMATION
  Report Type: Spontaneous
  Country: IT (occurrence: IT)
  Receive Date: 20160920
  Receipt Date: 20160920
  Transmission Date: 20161109
  Serious: Yes (Other)
  Sender: FDA-Public Use
  Company Number: IT-MYLANLABS-2016M1039458

PATIENT

DRUGS (2)
  1. TIOCOLCHICOSIDE MYLAN GENERICS [Suspect]
     Active Substance: THIOCOLCHICOSIDE
     Indication: ARTHRALGIA
     Dosage: 1 DF, QD
     Route: 030
     Dates: start: 20160609, end: 20160609
  2. KETOROLAC [Suspect]
     Active Substance: KETOROLAC\KETOROLAC TROMETHAMINE
     Indication: ARTHRALGIA
     Dosage: 1 DF, QD
     Route: 030
     Dates: start: 20160609, end: 20160609

REACTIONS (2)
  - Throat tightness [Recovering/Resolving]
  - Face oedema [Recovering/Resolving]

NARRATIVE: CASE EVENT DATE: 20160609
